FAERS Safety Report 25319652 (Version 1)
Quarter: 2025Q2

REPORT INFORMATION
  Report Type: Report from Study
  Country: US (occurrence: US)
  Receive Date: 20250515
  Receipt Date: 20250515
  Transmission Date: 20250716
  Serious: Yes (Hospitalization, Other)
  Sender: ABBVIE
  Company Number: US-ABBVIE-6271608

PATIENT
  Age: 41 Year
  Sex: Female

DRUGS (1)
  1. SKYRIZI [Suspect]
     Active Substance: RISANKIZUMAB-RZAA
     Indication: Crohn^s disease
     Route: 058
     Dates: start: 20250304

REACTIONS (7)
  - Abdominal operation [Recovered/Resolved]
  - Crohn^s disease [Recovered/Resolved]
  - Dermatitis acneiform [Unknown]
  - Abdominal distension [Recovered/Resolved]
  - Ovarian cyst [Unknown]
  - Appendicitis noninfective [Recovered/Resolved]
  - Abdominal pain [Recovered/Resolved]
